FAERS Safety Report 6394861-7 (Version None)
Quarter: 2009Q4

REPORT INFORMATION
  Report Type: 
  Country: None (occurrence: None)
  Receive Date: 20091009
  Receipt Date: 20090930
  Transmission Date: 20100525
  Serious: Yes (Hospitalization)
  Sender: FDA-Public Use
  Company Number: US-JNJFOC-20091000345

PATIENT
  Sex: Female
  Weight: 86 kg

DRUGS (11)
  1. REMICADE [Suspect]
     Route: 042
  2. REMICADE [Suspect]
     Indication: SARCOIDOSIS
     Route: 042
  3. BACLOFEN [Concomitant]
  4. LOVENOX [Concomitant]
  5. FOLIC ACID [Concomitant]
  6. NEURONTIN [Concomitant]
  7. PREVACID [Concomitant]
  8. METHOTREXATE [Concomitant]
  9. PREDNISONE [Concomitant]
  10. DILAUDID [Concomitant]
  11. LORTAB [Concomitant]

REACTIONS (1)
  - HOSPITALISATION [None]
